FAERS Safety Report 18512854 (Version 1)
Quarter: 2020Q4

REPORT INFORMATION
  Report Type: Spontaneous
  Country: CZ (occurrence: CZ)
  Receive Date: 20201117
  Receipt Date: 20201117
  Transmission Date: 20210114
  Serious: Yes (Other)
  Sender: FDA-Public Use
  Company Number: CZ-TOLMAR, INC.-20CZ023918

PATIENT
  Age: 60 Year
  Sex: Male

DRUGS (4)
  1. PIPERACILLIN/TAZOBACTAM [Suspect]
     Active Substance: PIPERACILLIN SODIUM\TAZOBACTAM SODIUM
     Indication: HERPES VIRUS INFECTION
     Route: 042
  2. ACYCLOVIR. [Suspect]
     Active Substance: ACYCLOVIR
     Indication: HERPES VIRUS INFECTION
     Dosage: UNK
     Route: 065
  3. OXACILLIN [Suspect]
     Active Substance: OXACILLIN SODIUM
     Indication: HERPES VIRUS INFECTION
     Route: 042
  4. ACITRETIN. [Concomitant]
     Active Substance: ACITRETIN
     Indication: KERATOSIS FOLLICULAR
     Dosage: 25 MG
     Route: 048

REACTIONS (4)
  - Corynebacterium infection [Recovered/Resolved]
  - Pneumonia [Recovered/Resolved]
  - Drug resistance [Recovered/Resolved]
  - Sepsis [Recovered/Resolved]
